FAERS Safety Report 12185327 (Version 2)
Quarter: 2016Q2

REPORT INFORMATION
  Report Type: Report from Study
  Country: DE (occurrence: MX)
  Receive Date: 20160316
  Receipt Date: 20160516
  Transmission Date: 20160815
  Serious: Yes (Other)
  Sender: FDA-Public Use
  Company Number: DE-ACTELION-A-US2016-133054

PATIENT
  Age: 54 Year
  Sex: Female

DRUGS (2)
  1. VENTAVIS [Suspect]
     Active Substance: ILOPROST
     Indication: PULMONARY HYPERTENSION
     Dosage: UNK
     Route: 055
  2. SINTROM [Suspect]
     Active Substance: ACENOCOUMAROL
     Indication: PRODUCT USED FOR UNKNOWN INDICATION
     Dosage: 0.25 DF, (QUARTER)
     Route: 065

REACTIONS (8)
  - Haemorrhage [Recovered/Resolved]
  - Dysphonia [Recovered/Resolved]
  - Oropharyngeal discomfort [Recovered/Resolved]
  - Haemorrhage urinary tract [Recovered/Resolved]
  - Platelet count decreased [Recovering/Resolving]
  - Epistaxis [Recovering/Resolving]
  - Unevaluable event [Recovering/Resolving]
  - Feeling abnormal [Recovering/Resolving]

NARRATIVE: CASE EVENT DATE: 201602
